FAERS Safety Report 7366633-8 (Version None)
Quarter: 2011Q1

REPORT INFORMATION
  Report Type: 
  Country: None (occurrence: None)
  Receive Date: 20110310
  Receipt Date: 20110223
  Transmission Date: 20110831
  Serious: Yes (Hospitalization, Other)
  Sender: FDA-Public Use
  Company Number: AUR-APL-2011-00564

PATIENT
  Age: 54 Year
  Sex: Male

DRUGS (8)
  1. BURINEX [Concomitant]
  2. CORDARONE [Suspect]
     Dosage: IV THEN ORAL
     Dates: start: 20100201, end: 20100501
  3. METFORMIN HCL [Concomitant]
  4. CIPRALEX [Concomitant]
  5. DIGITOXIN TAB [Concomitant]
  6. ZANIDIP [Concomitant]
  7. DIOVAN [Concomitant]
  8. SIMVASTATIN [Suspect]
     Indication: HYPERCHOLESTEROLAEMIA
     Dosage: 40-80MG-DAILY-ORAL
     Route: 048
     Dates: end: 20100806

REACTIONS (3)
  - DRUG INTERACTION [None]
  - RHABDOMYOLYSIS [None]
  - MONOPARESIS [None]
